FAERS Safety Report 5801199-2 (Version None)
Quarter: 2008Q3

REPORT INFORMATION
  Report Type: 
  Country: None (occurrence: None)
  Receive Date: 20080707
  Receipt Date: 20080625
  Transmission Date: 20090109
  Serious: Yes (Death)
  Sender: FDA-Public Use
  Company Number: CA-JNJFOC-20050405357

PATIENT
  Age: 57 Year
  Sex: Female

DRUGS (13)
  1. DURAGESIC-100 [Suspect]
     Indication: PAIN
     Route: 062
  2. METOLAZONE [Concomitant]
  3. CETIRIZINE HCL [Concomitant]
     Route: 048
  4. ALLOPURINOL [Concomitant]
     Indication: GOUT
     Route: 048
  5. AMIODARONE HCL [Concomitant]
     Indication: CARDIAC DISORDER
     Route: 048
  6. GLYBURIDE [Concomitant]
     Indication: DIABETES MELLITUS
     Route: 048
  7. WARFARIN SODIUM [Concomitant]
     Indication: ATRIAL FIBRILLATION
     Route: 048
  8. FUROSEMIDE [Concomitant]
     Indication: DIURETIC THERAPY
     Route: 048
  9. BEXTRA [Concomitant]
     Indication: ARTHRALGIA
     Route: 048
  10. ATENOLOL [Concomitant]
  11. BUPROPION HCL [Concomitant]
  12. DIGOXIN [Concomitant]
  13. INDOMETHACIN [Concomitant]

REACTIONS (4)
  - CARDIAC DISORDER [None]
  - DEATH [None]
  - MEDICATION ERROR [None]
  - RESPIRATORY DEPRESSION [None]
